FAERS Safety Report 9286793 (Version 1)
Quarter: 2012Q4

REPORT INFORMATION
  Report Type: Spontaneous
  Country: DE (occurrence: None)
  Receive Date: 20120913
  Receipt Date: 20120913
  Transmission Date: 20130627
  Serious: Yes (Hospitalization)
  Sender: FDA-Public Use
  Company Number: 2011AT000055

PATIENT
  Age: 77 Year
  Sex: Female
  Weight: 61 kg

DRUGS (17)
  1. ACETYLSALICYLIC ACID (ACETYLSALICYLIC ACID) [Suspect]
  2. BISOPROLOL [Suspect]
  3. VALSARTAN [Suspect]
     Dates: start: 20100520
  4. PHENPROCOUMON [Suspect]
     Dates: start: 20100520, end: 20100609
  5. RAMIPRIL [Concomitant]
  6. VALPROIC ACID [Concomitant]
  7. SIMVASTATIN [Concomitant]
  8. PANTOPRAZOLE [Concomitant]
  9. FELODIPINE [Concomitant]
  10. ALLOPURINOL [Concomitant]
  11. SODIUM BICARBONATE [Concomitant]
  12. ROTIGOTINE [Suspect]
     Route: 062
     Dates: start: 20100409, end: 20100505
  13. ROTIGOTINE [Suspect]
     Route: 062
     Dates: start: 20100506, end: 20100527
  14. ROTIGOTINE [Suspect]
     Route: 062
     Dates: start: 20100528
  15. ISOKET [Suspect]
     Dates: start: 20100520, end: 20100606
  16. TORASEMIDE [Suspect]
  17. DIGITOXIN (DIGITOXIN) [Suspect]

REACTIONS (6)
  - Cardiac failure [None]
  - Parkinson^s disease [None]
  - Loss of consciousness [None]
  - Fall [None]
  - Haematoma [None]
  - Renal failure [None]
